FAERS Safety Report 9602771 (Version 3)
Quarter: 2014Q2

REPORT INFORMATION
  Report Type: Spontaneous
  Country: US (occurrence: US)
  Receive Date: 20131007
  Receipt Date: 20140508
  Transmission Date: 20141212
  Serious: Yes (Hospitalization, Disabling)
  Sender: FDA-Public Use
  Company Number: US-BAYER-2013-119950

PATIENT
  Age: 37 Year
  Sex: Female

DRUGS (4)
  1. YASMIN [Suspect]
     Dosage: UNK
     Dates: start: 20071129, end: 20080201
  2. YAZ [Suspect]
  3. DILANTIN [Concomitant]
     Indication: CONVULSION
  4. VICODIN [Concomitant]

REACTIONS (10)
  - Intracardiac thrombus [None]
  - Cerebrovascular accident [None]
  - Cerebral infarction [None]
  - Visual field defect [None]
  - Injury [None]
  - Pain [None]
  - Emotional distress [None]
  - Anxiety [None]
  - Fear of disease [None]
  - Pain [None]
